FAERS Safety Report 15383641 (Version 1)
Quarter: 2018Q3

REPORT INFORMATION
  Report Type: Spontaneous
  Country: US (occurrence: US)
  Receive Date: 20180913
  Receipt Date: 20180913
  Transmission Date: 20181010
  Serious: Yes (Hospitalization)
  Sender: FDA-Public Use
  Company Number: US-JAZZ-2018-US-013266

PATIENT
  Sex: Male

DRUGS (3)
  1. FAZACLO [Suspect]
     Active Substance: CLOZAPINE
     Dosage: 12.5 MG, SECOND DOSE
     Route: 048
  2. FAZACLO [Suspect]
     Active Substance: CLOZAPINE
     Indication: PRODUCT USED FOR UNKNOWN INDICATION
     Dosage: 37.5 MG, FIRST DOSE
     Route: 048
  3. FAZACLO [Suspect]
     Active Substance: CLOZAPINE
     Dosage: 50 MG, THIRD DOSE
     Route: 048

REACTIONS (1)
  - Urinary tract infection [Unknown]
